FAERS Safety Report 26185450 (Version 1)
Quarter: 2025Q4

REPORT INFORMATION
  Report Type: Spontaneous
  Country: EU (occurrence: EU)
  Receive Date: 20251222
  Receipt Date: 20251222
  Transmission Date: 20260118
  Serious: Yes (Hospitalization)
  Sender: ORION PHARMA
  Company Number: None

PATIENT
  Age: 67 Year
  Sex: Female
  Weight: 49 kg

DRUGS (19)
  1. METHOTREXATE [Suspect]
     Active Substance: METHOTREXATE
     Indication: Diffuse large B-cell lymphoma
     Dosage: FREQUENCY: 1 TOTAL
     Dates: start: 20251027, end: 20251027
  2. METHOTREXATE [Suspect]
     Active Substance: METHOTREXATE
     Dosage: FREQUENCY: 1 TOTAL
     Dates: start: 20251030, end: 20251030
  3. RITUXIMAB [Concomitant]
     Active Substance: RITUXIMAB
     Dosage: ((MAMMIFERE/HAMSTER/CELLULES CHO))
  4. CYCLOPHOSPHAMIDE [Concomitant]
     Active Substance: CYCLOPHOSPHAMIDE
  5. DOXORUBICIN [Concomitant]
     Active Substance: DOXORUBICIN
  6. VINCRISTINE SULFATE [Concomitant]
     Active Substance: VINCRISTINE SULFATE
  7. PREDNISOLONE [Concomitant]
     Active Substance: PREDNISOLONE
  8. BACTRIM [Concomitant]
     Active Substance: SULFAMETHOXAZOLE\TRIMETHOPRIM
  9. VALACYCLOVIR HYDROCHLORIDE [Concomitant]
     Active Substance: VALACYCLOVIR HYDROCHLORIDE
  10. LEUCOVORIN [Concomitant]
     Active Substance: LEUCOVORIN\LEUCOVORIN CALCIUM
  11. PREDNISONE [Concomitant]
     Active Substance: PREDNISONE
  12. CAFEINE (CITRATE DE) [Concomitant]
  13. NEFOPAM HYDROCHLORIDE [Concomitant]
     Active Substance: NEFOPAM HYDROCHLORIDE
  14. PANTOPRAZOLE [Concomitant]
     Active Substance: PANTOPRAZOLE
  15. LACTULOSE [Concomitant]
     Active Substance: LACTULOSE
  16. ACETAMINOPHEN [Concomitant]
     Active Substance: ACETAMINOPHEN
  17. ONDANSETRON [Concomitant]
     Active Substance: ONDANSETRON
  18. METOCLOPRAMIDE [Concomitant]
     Active Substance: METOCLOPRAMIDE
  19. CIMETIDINE [Concomitant]
     Active Substance: CIMETIDINE

REACTIONS (2)
  - Posterior reversible encephalopathy syndrome [Recovering/Resolving]
  - Overdose [Unknown]

NARRATIVE: CASE EVENT DATE: 20251030
